FAERS Safety Report 9795797 (Version 2)
Quarter: 2014Q1

REPORT INFORMATION
  Report Type: Spontaneous
  Country: US (occurrence: US)
  Receive Date: 20140103
  Receipt Date: 20140103
  Transmission Date: 20141002
  Serious: Yes (Hospitalization)
  Sender: FDA-Public Use
  Company Number: US-MALLINCKRODT-T201305199

PATIENT
  Age: 7 Year
  Sex: Female

DRUGS (1)
  1. GABLOFEN [Suspect]
     Indication: MUSCLE SPASTICITY
     Dosage: 24 MCG/DAY
     Route: 037

REACTIONS (7)
  - Altered state of consciousness [Not Recovered/Not Resolved]
  - Facial paresis [Recovering/Resolving]
  - Upper respiratory tract infection [Unknown]
  - Oxygen saturation decreased [Not Recovered/Not Resolved]
  - Hypotonia [Not Recovered/Not Resolved]
  - Hordeolum [Unknown]
  - Hypertonia [Unknown]
